FAERS Safety Report 16391511 (Version 2)
Quarter: 2019Q2

REPORT INFORMATION
  Report Type: Spontaneous
  Country: US (occurrence: US)
  Receive Date: 20190605
  Receipt Date: 20190612
  Transmission Date: 20190711
  Serious: Yes (Hospitalization)
  Sender: FDA-Public Use
  Company Number: US-AMGEN-USASP2019086888

PATIENT
  Sex: Female

DRUGS (2)
  1. KYPROLIS [Suspect]
     Active Substance: CARFILZOMIB
     Indication: PLASMA CELL MYELOMA
     Dosage: 20 MILLIGRAM/SQ. METER (35 MG)
     Route: 065
     Dates: start: 20190422
  2. KYPROLIS [Suspect]
     Active Substance: CARFILZOMIB
     Dosage: 69.71 MILLIGRAM/SQ. METER, QWK (122 MG)
     Route: 065
     Dates: start: 20190429

REACTIONS (1)
  - Dyspnoea [Unknown]

NARRATIVE: CASE EVENT DATE: 2019
